FAERS Safety Report 17053414 (Version 2)
Quarter: 2020Q1

REPORT INFORMATION
  Report Type: Report from Study
  Country: JP (occurrence: JP)
  Receive Date: 20191120
  Receipt Date: 20200212
  Transmission Date: 20200409
  Serious: Yes (Other)
  Sender: FDA-Public Use
  Company Number: JP-CLINIGEN GROUP PLC/ CLINIGEN HEALTHCARE LTD-JP-CLGN-18-00461

PATIENT
  Sex: Male
  Weight: 38.6 kg

DRUGS (16)
  1. ENDOXAN [Concomitant]
     Active Substance: CYCLOPHOSPHAMIDE
     Indication: PRODUCT USED FOR UNKNOWN INDICATION
     Dates: start: 20181031, end: 20181031
  2. DOXORUBICIN HYDROCHLORIDE. [Concomitant]
     Active Substance: DOXORUBICIN HYDROCHLORIDE
     Indication: PRODUCT USED FOR UNKNOWN INDICATION
     Route: 042
     Dates: start: 20181031, end: 20181101
  3. UROMITEXAN [Concomitant]
     Active Substance: MESNA
     Indication: PROPHYLAXIS
     Route: 042
     Dates: start: 20181031, end: 20181031
  4. SAVENE [Suspect]
     Active Substance: DEXRAZOXANE
     Indication: CHEMOTHERAPY CARDIOTOXICITY ATTENUATION
     Route: 041
     Dates: start: 20181031, end: 20181101
  5. DOXORUBICIN HYDROCHLORIDE. [Concomitant]
     Active Substance: DOXORUBICIN HYDROCHLORIDE
     Route: 042
     Dates: start: 20190226, end: 20190227
  6. UROMITEXAN [Concomitant]
     Active Substance: MESNA
     Route: 042
     Dates: start: 20190226, end: 20190226
  7. DECADRON [Concomitant]
     Active Substance: DEXAMETHASONE
     Indication: NAUSEA
     Dates: start: 20181031, end: 20181101
  8. SEISHOKU [Concomitant]
     Active Substance: SODIUM CHLORIDE
     Indication: MEDICATION DILUTION
     Route: 041
     Dates: start: 20181031, end: 20181101
  9. ENDOXAN [Concomitant]
     Active Substance: CYCLOPHOSPHAMIDE
     Dates: start: 20190226, end: 20190226
  10. PROEMEND [Concomitant]
     Active Substance: FOSAPREPITANT
     Indication: NAUSEA
     Route: 041
     Dates: start: 20181031, end: 20181031
  11. PROEMEND [Concomitant]
     Active Substance: FOSAPREPITANT
     Route: 041
     Dates: start: 20190226, end: 20190226
  12. SEISHOKU [Concomitant]
     Active Substance: SODIUM CHLORIDE
     Route: 041
     Dates: start: 20190226, end: 20190227
  13. ONCOVIN [Concomitant]
     Active Substance: VINCRISTINE SULFATE
     Route: 042
     Dates: start: 20190226, end: 20190226
  14. SAVENE [Suspect]
     Active Substance: DEXRAZOXANE
     Route: 041
     Dates: start: 20190226, end: 20190227
  15. ONCOVIN [Concomitant]
     Active Substance: VINCRISTINE SULFATE
     Indication: PRODUCT USED FOR UNKNOWN INDICATION
     Route: 042
     Dates: start: 20181031, end: 20181101
  16. DECADRON [Concomitant]
     Active Substance: DEXAMETHASONE
     Dates: start: 20190226, end: 20190227

REACTIONS (1)
  - Off label use [Unknown]
